FAERS Safety Report 24717309 (Version 1)
Quarter: 2024Q4

REPORT INFORMATION
  Report Type: Spontaneous
  Country: PT (occurrence: PT)
  Receive Date: 20241210
  Receipt Date: 20241210
  Transmission Date: 20250115
  Serious: Yes (Life-Threatening, Hospitalization, Other)
  Sender: PFIZER
  Company Number: PT-PFIZER INC-PV202400158915

PATIENT
  Age: 33 Year
  Sex: Female

DRUGS (2)
  1. MISOPROSTOL [Suspect]
     Active Substance: MISOPROSTOL
     Indication: Uterine atony
     Dosage: 800 UG
     Route: 054
  2. MISOPROSTOL [Suspect]
     Active Substance: MISOPROSTOL
     Indication: Haemorrhage

REACTIONS (4)
  - Delirium [Unknown]
  - Hyperthermia malignant [Unknown]
  - Sinus tachycardia [Unknown]
  - Off label use [Unknown]
